FAERS Safety Report 8021715-2 (Version None)
Quarter: 2012Q1

REPORT INFORMATION
  Report Type: 
  Country: None (occurrence: None)
  Receive Date: 20120104
  Receipt Date: 20111228
  Transmission Date: 20120608
  Serious: Yes (Hospitalization, Other)
  Sender: FDA-Public Use
  Company Number: PHHY2009CA21848

PATIENT
  Sex: Female

DRUGS (4)
  1. SANDOSTATIN LAR [Suspect]
     Indication: PANCREATIC NEUROENDOCRINE TUMOUR
     Dosage: 30 MG, EVERY 3 WEEKS
     Route: 030
  2. SANDOSTATIN LAR [Suspect]
     Indication: CARCINOID TUMOUR
     Dosage: 30 MG, EVERY 4 WEEKS
     Route: 030
     Dates: start: 20050307
  3. INSULIN [Concomitant]
  4. METFORMIN HCL [Concomitant]

REACTIONS (6)
  - HAEMORRHAGE [None]
  - FATIGUE [None]
  - MENORRHAGIA [None]
  - NAUSEA [None]
  - MUSCULOSKELETAL PAIN [None]
  - ASTHENIA [None]
